FAERS Safety Report 4732225-X (Version None)
Quarter: 2005Q3

REPORT INFORMATION
  Report Type: 
  Country: None (occurrence: None)
  Receive Date: 20050711
  Receipt Date: 20050607
  Transmission Date: 20060218
  Serious: Yes (Disabling)
  Sender: FDA-Public Use
  Company Number: 200000192BW 1 - (01-200597)

PATIENT
  Age: 11 Year
  Sex: Male

DRUGS (10)
  1. HAEMATE HS (FACTOR VIII (ANTIHAEMOPHILIC FACTOR)) (ZLB BEHRING) [Suspect]
     Indication: HAEMOPHILIA
     Dates: start: 19900413
  2. AHG (HERSTELLER UNBEKANNT) [Suspect]
     Indication: HAEMOPHILIA
     Dates: start: 19700712, end: 19750919
  3. AHG (HYLAND) [Suspect]
     Indication: HAEMOPHILIA
     Dates: start: 19720321, end: 19720518
  4. FAKTOR VIII (HERSTELLER UNBEKANNT) [Suspect]
     Indication: HAEMOPHILIA
     Dates: start: 19741207, end: 19900101
  5. KRYOGLOBULIN (IMMUNO) [Suspect]
     Indication: HAEMOPHILIA
     Dates: start: 19750419
  6. AHG (IMMUNO) [Suspect]
     Indication: HAEMOPHILIA
     Dates: start: 19750615, end: 19770927
  7. FAKTOR VIII (IMMUNO) [Suspect]
     Indication: HAEMOPHILIA
     Dates: start: 19760104
  8. KOATE [Suspect]
     Indication: HAEMOPHILIA
     Dates: start: 19790529, end: 19831129
  9. AHG (CUTTER) [Suspect]
     Indication: HAEMOPHILIA
     Dates: start: 19790612, end: 19850101
  10. ANTIHEMOPHILIC FACTOR (HUMAN) [Concomitant]

REACTIONS (3)
  - GAMMA-GLUTAMYLTRANSFERASE INCREASED [None]
  - HEPATITIS C [None]
  - HEPATITIS C VIRUS [None]
